FAERS Safety Report 10204454 (Version 1)
Quarter: 2014Q2

REPORT INFORMATION
  Report Type: Spontaneous
  Country: CN (occurrence: CN)
  Receive Date: 20140529
  Receipt Date: 20140529
  Transmission Date: 20141212
  Serious: Yes (Other)
  Sender: FDA-Public Use
  Company Number: CN-ACTAVIS-2014-11486

PATIENT
  Age: 27 Year
  Sex: Male

DRUGS (4)
  1. QUETIAPINE (UNKNOWN) [Suspect]
     Indication: MAJOR DEPRESSION
     Dosage: 200 MG, DAILY
     Route: 065
     Dates: start: 200802
  2. QUETIAPINE (UNKNOWN) [Suspect]
     Dosage: 100 MG, DAILY
     Route: 065
     Dates: start: 200412
  3. OLANZAPINE (UNKNOWN) [Suspect]
     Indication: MAJOR DEPRESSION
     Dosage: 20 MG, DAILY
     Route: 065
  4. OLANZAPINE (UNKNOWN) [Suspect]
     Dosage: 10 MG, DAILY
     Route: 065

REACTIONS (3)
  - Tubulointerstitial nephritis [Recovered/Resolved]
  - Dizziness [Unknown]
  - Sedation [Unknown]
